FAERS Safety Report 15300075 (Version 4)
Quarter: 2019Q3

REPORT INFORMATION
  Report Type: Spontaneous
  Country: US (occurrence: US)
  Receive Date: 20180821
  Receipt Date: 20190916
  Transmission Date: 20191004
  Serious: Yes (Other)
  Sender: FDA-Public Use
  Company Number: US-PFIZER INC-2018332943

PATIENT
  Age: 49 Year
  Sex: Female

DRUGS (1)
  1. VISTARIL [Suspect]
     Active Substance: HYDROXYZINE PAMOATE
     Indication: ANXIETY DISORDER
     Dosage: UNK
     Route: 048

REACTIONS (9)
  - Cardiac valve disease [Unknown]
  - Systemic lupus erythematosus [Unknown]
  - Amnesia [Unknown]
  - Arthropathy [Unknown]
  - Hypersomnia [Unknown]
  - Hypoaesthesia [Unknown]
  - Impaired gastric emptying [Unknown]
  - Thrombosis [Unknown]
  - Fatigue [Unknown]
